FAERS Safety Report 12404714 (Version 1)
Quarter: 2016Q2

REPORT INFORMATION
  Report Type: Spontaneous
  Country: US (occurrence: US)
  Receive Date: 20160525
  Receipt Date: 20160525
  Transmission Date: 20160815
  Serious: Yes (Other)
  Sender: FDA-Public Use
  Company Number: US-GLAXOSMITHKLINE-US2016066286

PATIENT
  Age: 57 Year
  Sex: Female

DRUGS (1)
  1. ADVAIR DISKUS [Suspect]
     Active Substance: FLUTICASONE PROPIONATE\SALMETEROL XINAFOATE
     Indication: ASTHMA
     Dosage: 2 PUFF(S), BID
     Route: 055
     Dates: start: 20160504, end: 20160509

REACTIONS (6)
  - Pneumonia [Unknown]
  - Headache [Unknown]
  - Incorrect dose administered [Recovered/Resolved]
  - Asthma [Unknown]
  - Bronchitis [Unknown]
  - Wheezing [Unknown]

NARRATIVE: CASE EVENT DATE: 20160504
